FAERS Safety Report 14028509 (Version 2)
Quarter: 2017Q4

REPORT INFORMATION
  Report Type: Spontaneous
  Country: US (occurrence: US)
  Receive Date: 20170930
  Receipt Date: 20171003
  Transmission Date: 20180321
  Serious: Yes (Other)
  Sender: FDA-Public Use
  Company Number: US-SA-2017SA049229

PATIENT
  Age: 61 Year
  Sex: Male
  Weight: 99.7 kg

DRUGS (6)
  1. VITAMIN D [Concomitant]
     Active Substance: CHOLECALCIFEROL
     Dosage: 50,000 IN 1/WEEK
     Route: 065
  2. AUBAGIO [Suspect]
     Active Substance: TERIFLUNOMIDE
     Indication: MULTIPLE SCLEROSIS
     Route: 048
     Dates: start: 20160219
  3. AUBAGIO [Suspect]
     Active Substance: TERIFLUNOMIDE
     Indication: PROPHYLAXIS
     Route: 048
     Dates: start: 20160219
  4. AUBAGIO [Suspect]
     Active Substance: TERIFLUNOMIDE
     Indication: MULTIPLE SCLEROSIS
     Route: 048
     Dates: start: 20160219
  5. AMPYRA [Concomitant]
     Active Substance: DALFAMPRIDINE
     Indication: MOBILITY DECREASED
     Route: 065
     Dates: start: 201508
  6. AUBAGIO [Suspect]
     Active Substance: TERIFLUNOMIDE
     Indication: PROPHYLAXIS
     Route: 048
     Dates: start: 20160219

REACTIONS (4)
  - Haemorrhage [Recovered/Resolved]
  - Increased appetite [Unknown]
  - Fall [Recovered/Resolved]
  - Multiple sclerosis [Not Recovered/Not Resolved]

NARRATIVE: CASE EVENT DATE: 20170106
